FAERS Safety Report 6078017-3 (Version None)
Quarter: 2009Q1

REPORT INFORMATION
  Report Type: 
  Country: None (occurrence: None)
  Receive Date: 20090213
  Receipt Date: 20090206
  Transmission Date: 20090719
  Serious: Yes (Hospitalization, Other)
  Sender: FDA-Public Use
  Company Number: US-PFIZER INC-2008040639

PATIENT
  Sex: Female
  Weight: 68 kg

DRUGS (3)
  1. LIPITOR [Suspect]
     Indication: BLOOD CHOLESTEROL INCREASED
     Route: 048
     Dates: start: 20080201, end: 20080201
  2. DRUG, UNSPECIFIED [Concomitant]
  3. HUMALOG [Concomitant]
     Indication: DIABETES MELLITUS
     Dosage: 75/25

REACTIONS (5)
  - BACK PAIN [None]
  - FIBROMYALGIA [None]
  - MUSCLE SPASMS [None]
  - PAIN IN EXTREMITY [None]
  - WEIGHT INCREASED [None]
